FAERS Safety Report 8925689 (Version 1)
Quarter: 2012Q4

REPORT INFORMATION
  Report Type: 
  Country: SE (occurrence: SE)
  Receive Date: 20121126
  Receipt Date: 20121126
  Transmission Date: 20130627
  Serious: Yes (Hospitalization, Other)
  Sender: FDA-Public Use
  Company Number: SE-AMGEN-SWESP2012074861

PATIENT
  Age: 44 Year
  Sex: Male

DRUGS (1)
  1. ARANESP [Suspect]
     Indication: PRODUCT USED FOR UNKNOWN INDICATION
     Dosage: 50 mug, qwk
     Dates: start: 201208

REACTIONS (6)
  - Haemoglobin decreased [Unknown]
  - Aplasia pure red cell [Unknown]
  - Vitamin B12 deficiency [Unknown]
  - Haemolysis [Unknown]
  - White blood cell count decreased [Unknown]
  - Platelet count decreased [Unknown]
